FAERS Safety Report 5668148-1 (Version None)
Quarter: 2008Q1

REPORT INFORMATION
  Report Type: 
  Country: None (occurrence: None)
  Receive Date: 20080313
  Receipt Date: 20080229
  Transmission Date: 20080703
  Serious: Yes (Other)
  Sender: FDA-Public Use
  Company Number: 2008004199

PATIENT
  Sex: Female

DRUGS (7)
  1. ZYRTEC-D 12 HOUR [Suspect]
     Indication: HYPERSENSITIVITY
  2. CELEBREX [Suspect]
     Indication: BACK PAIN
  3. CELEBREX [Suspect]
     Indication: MUSCLE STRAIN
  4. NEXIUM [Suspect]
     Indication: PROPHYLAXIS
  5. NAPROSYN [Suspect]
     Indication: INFLAMMATION
  6. NAPROSYN [Suspect]
     Indication: PAIN
  7. ZYRTEC [Concomitant]

REACTIONS (11)
  - ABDOMINAL PAIN UPPER [None]
  - DEPRESSION [None]
  - FLUID RETENTION [None]
  - GAIT DISTURBANCE [None]
  - HERNIA [None]
  - IMMOBILE [None]
  - IMPAIRED WORK ABILITY [None]
  - OEDEMA PERIPHERAL [None]
  - PAIN [None]
  - VOMITING [None]
  - WEIGHT INCREASED [None]
